FAERS Safety Report 17150448 (Version 1)
Quarter: 2019Q4

REPORT INFORMATION
  Report Type: Spontaneous
  Country: US (occurrence: US)
  Receive Date: 20191213
  Receipt Date: 20191213
  Transmission Date: 20200122
  Serious: No
  Sender: FDA-Public Use
  Company Number: US-UCBSA-2015035632

PATIENT
  Age: 22 Year
  Sex: Female

DRUGS (5)
  1. ONFI [Concomitant]
     Active Substance: CLOBAZAM
     Dosage: 5 MG AT NIGHT
  2. VIMPAT [Suspect]
     Active Substance: LACOSAMIDE
     Indication: PARTIAL SEIZURES
     Dosage: 3X/DAY (TID),150MG IN THE AM 100MG IN THE AFTERNOON AND 100MG AT NIGHT
     Dates: start: 20150912, end: 20151009
  3. VIMPAT [Suspect]
     Active Substance: LACOSAMIDE
     Dosage: LAST DOSE WAS INCREASED
     Dates: start: 20151010
  4. TRILEPTAL [Concomitant]
     Active Substance: OXCARBAZEPINE
     Indication: PRODUCT USED FOR UNKNOWN INDICATION
     Dosage: DOSE IS BEING DECREASED
  5. CAMRESE [Concomitant]
     Active Substance: ETHINYL ESTRADIOL\LEVONORGESTREL
     Indication: CONTRACEPTION

REACTIONS (4)
  - Energy increased [Not Recovered/Not Resolved]
  - Middle insomnia [Not Recovered/Not Resolved]
  - Inappropriate schedule of product administration [Unknown]
  - Decreased appetite [Not Recovered/Not Resolved]

NARRATIVE: CASE EVENT DATE: 201509
